FAERS Safety Report 13134813 (Version 3)
Quarter: 2017Q1

REPORT INFORMATION
  Report Type: Spontaneous
  Country: KR (occurrence: KR)
  Receive Date: 20170120
  Receipt Date: 20170315
  Transmission Date: 20170428
  Serious: Yes (Hospitalization)
  Sender: FDA-Public Use
  Company Number: KR-009507513-1701KOR007969

PATIENT
  Age: 54 Year
  Sex: Male
  Weight: 65 kg

DRUGS (26)
  1. HERCEPTIN [Concomitant]
     Active Substance: TRASTUZUMAB
     Indication: GASTRIC CANCER
     Dosage: 426 MG, ONCE; CYCLE 1
     Route: 042
     Dates: start: 20160610, end: 20160610
  2. XELCATABINE [Concomitant]
     Indication: GASTRIC CANCER
     Dosage: 1000 MG, TWICE A DAY; CYCLE 1
     Route: 048
     Dates: start: 20160520, end: 20160530
  3. IRCODON [Concomitant]
     Indication: CANCER PAIN
     Dosage: 10 MG, DAILY
     Route: 048
     Dates: start: 20160524, end: 20160603
  4. EMEND (FOSAPREPITANT DIMEGLUMINE) [Suspect]
     Active Substance: FOSAPREPITANT DIMEGLUMINE
     Indication: PROPHYLAXIS OF NAUSEA AND VOMITING
     Dosage: 150 MG, ONCE
     Route: 042
     Dates: start: 20160520, end: 20160520
  5. SODIUM ALGINATE [Concomitant]
     Active Substance: SODIUM ALGINATE
     Indication: DYSPEPSIA
     Dosage: 20 ML, THREE TIMES A DAY
     Route: 048
     Dates: start: 20160524, end: 20160603
  6. MATRIFEN [Concomitant]
     Active Substance: FENTANYL
     Dosage: 75 MICROGRAM, DAILY. STRENGTH: 25MCG/H/8.4CM2
     Route: 003
     Dates: start: 20160519, end: 20160519
  7. MORPHINE HYDROCHLORIDE [Concomitant]
     Active Substance: MORPHINE HYDROCHLORIDE
     Dosage: 20 MG, DAILY.
     Route: 042
     Dates: start: 20160519, end: 20160520
  8. XELCATABINE [Concomitant]
     Dosage: 1740 MG, TWICE A DAY; CYCLE 2
     Route: 048
     Dates: start: 20160610
  9. DEXAMETHASONE. [Concomitant]
     Active Substance: DEXAMETHASONE
     Indication: PROPHYLAXIS OF NAUSEA AND VOMITING
     Dosage: 3.75 MG, TWICE A DAY
     Route: 048
     Dates: start: 20160610, end: 20160613
  10. LASIX [Concomitant]
     Active Substance: FUROSEMIDE
     Dosage: 20 MG, ONCE.
     Route: 042
     Dates: start: 20160610, end: 20160610
  11. ULCERLMIN [Concomitant]
     Active Substance: SUCRALFATE
     Indication: DYSPEPSIA
     Dosage: 15 ML, THREE TIMES A DAY; STRENGTH: 1 G/15 ML
     Route: 048
     Dates: start: 20160516, end: 20160603
  12. GODEX CAP [Concomitant]
     Indication: JAUNDICE
     Dosage: 1 CAPSULE, THREE TIMES A DAY
     Route: 048
     Dates: start: 20160603
  13. EMEND (FOSAPREPITANT DIMEGLUMINE) [Suspect]
     Active Substance: FOSAPREPITANT DIMEGLUMINE
     Dosage: 150 MG, ONCE
     Route: 042
     Dates: start: 20160610, end: 20160610
  14. MACPERAN [Concomitant]
     Active Substance: METOCLOPRAMIDE HYDROCHLORIDE
     Indication: DYSPEPSIA
     Dosage: 1 TABLET, THREE TIMES A DAY
     Route: 048
     Dates: start: 20160524, end: 20160603
  15. MORPHINE HYDROCHLORIDE [Concomitant]
     Active Substance: MORPHINE HYDROCHLORIDE
     Indication: CANCER PAIN
     Dosage: 20 MG, DAILY
     Route: 042
     Dates: start: 20160516, end: 20160516
  16. MANNITOL. [Concomitant]
     Active Substance: MANNITOL
     Dosage: 100 ML, ONCE. STRENGTH: 15% 100ML.
     Route: 042
     Dates: start: 20160610, end: 20160610
  17. MATRIFEN [Concomitant]
     Active Substance: FENTANYL
     Indication: CANCER PAIN
     Dosage: 50 MICROGRAM, DAILY. STRENGTH: 25MCG/H, 8.4CM2
     Route: 003
     Dates: start: 20160511, end: 20160514
  18. MATRIFEN [Concomitant]
     Active Substance: FENTANYL
     Dosage: 50 MICROGRAM, DAILY. STRENGTH: 25MCG/H/8.4CM2
     Route: 003
     Dates: start: 20160517, end: 20160517
  19. MATRIFEN [Concomitant]
     Active Substance: FENTANYL
     Dosage: 100 MICROGRAM, DAILY. STRENGTH: 25MCG/H/8.4CM2
     Route: 003
     Dates: start: 20160522, end: 20160624
  20. CISPLATIN. [Concomitant]
     Active Substance: CISPLATIN
     Indication: GASTRIC CANCER
     Dosage: 104.4 MG, ONCE; CYCLE 2; STRENGTH: 50 MG/100 ML
     Dates: start: 20160610, end: 20160610
  21. ALOXI [Concomitant]
     Active Substance: PALONOSETRON HYDROCHLORIDE
     Indication: NAUSEA
     Dosage: 0.25 MG, ONCE
     Route: 042
     Dates: start: 20160610, end: 20160610
  22. LANSTON [Concomitant]
     Active Substance: LANSOPRAZOLE
     Indication: DYSPEPSIA
     Dosage: 1 TABLET (30 MG), DAILY
     Route: 048
     Dates: start: 20160516
  23. LEXAPRO [Concomitant]
     Active Substance: ESCITALOPRAM OXALATE
     Indication: DYSPEPSIA
     Dosage: 15 MG, DAILY
     Route: 048
     Dates: start: 20160516, end: 20160603
  24. MATRIFEN [Concomitant]
     Active Substance: FENTANYL
     Dosage: 25 MICROGRAM, DAILY. STRENGTH:25MCG/H/8.4CM2
     Route: 003
     Dates: start: 20160520, end: 20160520
  25. MATRIFEN [Concomitant]
     Active Substance: FENTANYL
     Dosage: 25 MICROGRAM, DAILY. STRENGTH: 25MCG/H, 8.4CM2
     Route: 003
     Dates: start: 20160515, end: 20160515
  26. MATRIFEN [Concomitant]
     Active Substance: FENTANYL
     Dosage: 50 MICROGRAM, DAILY. STRENGTH: 25MCG/H/8.4CM2
     Route: 003
     Dates: start: 20160625

REACTIONS (4)
  - Drug effect incomplete [Unknown]
  - Vomiting [Recovered/Resolved]
  - Jaundice [Recovered/Resolved]
  - Nausea [Recovering/Resolving]

NARRATIVE: CASE EVENT DATE: 20160610
